FAERS Safety Report 5528016-2 (Version None)
Quarter: 2007Q4

REPORT INFORMATION
  Report Type: 
  Country: None (occurrence: None)
  Receive Date: 20071123
  Receipt Date: 20071119
  Transmission Date: 20080405
  Serious: Yes (Hospitalization)
  Sender: FDA-Public Use
  Company Number: 2007RL000515

PATIENT
  Age: 49 Year
  Sex: Female

DRUGS (3)
  1. LOVAZA [Suspect]
     Indication: BLOOD TRIGLYCERIDES INCREASED
     Dosage: 4 GM; QD; PO
     Route: 048
     Dates: start: 20070830, end: 20071030
  2. BYETTA [Suspect]
     Indication: DRUG USE FOR UNKNOWN INDICATION
     Dates: start: 20070830
  3. ^AT LEAST TEN OTHER MEDICATIONS^ [Concomitant]

REACTIONS (2)
  - BLOOD TRIGLYCERIDES INCREASED [None]
  - CHOLELITHIASIS [None]
